FAERS Safety Report 26201681 (Version 1)
Quarter: 2025Q4

REPORT INFORMATION
  Report Type: Other
  Country: EU (occurrence: EU)
  Receive Date: 20251226
  Receipt Date: 20251226
  Transmission Date: 20260117
  Serious: Yes (Other)
  Sender: ZYDUS PHARM
  Company Number: None

PATIENT

DRUGS (7)
  1. BACLOFEN [Suspect]
     Active Substance: BACLOFEN
     Indication: Alcoholism
     Dosage: UNK
     Route: 048
     Dates: start: 20250601
  2. CELECOXIB [Suspect]
     Active Substance: CELECOXIB
     Indication: Ankylosing spondylitis
     Route: 048
     Dates: start: 20250601
  3. FEBUXOSTAT [Suspect]
     Active Substance: FEBUXOSTAT
     Indication: Gouty tophus
     Dosage: 120 MILLIGRAM
     Route: 048
     Dates: start: 20250601
  4. LANSOPRAZOLE [Suspect]
     Active Substance: LANSOPRAZOLE
     Indication: Product used for unknown indication
     Dosage: 30 MILLIGRAM
     Route: 048
     Dates: start: 20250601
  5. CERTOLIZUMAB PEGOL [Suspect]
     Active Substance: CERTOLIZUMAB PEGOL
     Indication: Ankylosing spondylitis
     Dosage: 1 DOSAGE FORM PER 2 WEEKS
     Route: 058
     Dates: start: 20250601
  6. COLCHICINE [Suspect]
     Active Substance: COLCHICINE
     Indication: Gouty tophus
     Dosage: 1 MILLIGRAM
     Route: 048
  7. DARIDOREXANT HYDROCHLORIDE [Suspect]
     Active Substance: DARIDOREXANT HYDROCHLORIDE
     Indication: Insomnia
     Dosage: 50 MILLIGRAM
     Dates: start: 20250601

REACTIONS (1)
  - Hepatitis acute [Not Recovered/Not Resolved]

NARRATIVE: CASE EVENT DATE: 20250901
